FAERS Safety Report 7269703-8 (Version None)
Quarter: 2011Q1

REPORT INFORMATION
  Report Type: 
  Country: None (occurrence: None)
  Receive Date: 20110124
  Receipt Date: 20110111
  Transmission Date: 20110831
  Serious: Yes (Other)
  Sender: FDA-Public Use
  Company Number: 110008

PATIENT
  Age: 60 Year
  Sex: Female

DRUGS (1)
  1. PEG 3350 AND ELECTROLYTES [Suspect]
     Indication: COLONOSCOPY
     Dosage: 3 GLASSES/1X/PO
     Route: 048
     Dates: start: 20110110

REACTIONS (4)
  - RASH ERYTHEMATOUS [None]
  - STRIDOR [None]
  - RASH PRURITIC [None]
  - RESPIRATORY TRACT OEDEMA [None]
